FAERS Safety Report 9761847 (Version 1)
Quarter: 2013Q4

REPORT INFORMATION
  Report Type: Spontaneous
  Country: US (occurrence: US)
  Receive Date: 20131216
  Receipt Date: 20131216
  Transmission Date: 20140711
  Serious: No
  Sender: FDA-Public Use
  Company Number: US-BIOGENIDEC-2013BI106242

PATIENT
  Age: 49 Year
  Sex: Female

DRUGS (4)
  1. TECFIDERA [Suspect]
     Indication: MULTIPLE SCLEROSIS
     Route: 048
     Dates: start: 201309, end: 201310
  2. FERROUS SULFATE [Concomitant]
  3. LASIX [Concomitant]
  4. VITAMIN B COMPLEX [Concomitant]

REACTIONS (5)
  - Headache [Recovered/Resolved]
  - Asthenia [Recovered/Resolved]
  - Migraine [Unknown]
  - Hypoaesthesia [Unknown]
  - Somnolence [Unknown]
